FAERS Safety Report 13230127 (Version 1)
Quarter: 2017Q1

REPORT INFORMATION
  Report Type: Spontaneous
  Country: US (occurrence: US)
  Receive Date: 20170213
  Receipt Date: 20170213
  Transmission Date: 20170428
  Serious: Yes (Disabling)
  Sender: FDA-Public Use
  Company Number: None

PATIENT
  Age: 54 Year
  Sex: Female
  Weight: 60 kg

DRUGS (7)
  1. HEALTH PRODUCTS [Concomitant]
  2. CHLORHEX GLUCONATE 0.12% [Suspect]
     Active Substance: CHLORHEXIDINE GLUCONATE
     Indication: DENTAL DISORDER PROPHYLAXIS
     Dosage: ?          QUANTITY:15 ML;?
     Route: 048
     Dates: start: 20160613, end: 20170129
  3. DHEA [Concomitant]
     Active Substance: PRASTERONE
  4. CHLORHEX GLUCONATE 0.12% [Suspect]
     Active Substance: CHLORHEXIDINE GLUCONATE
     Indication: GINGIVITIS
     Dosage: ?          QUANTITY:15 ML;?
     Route: 048
     Dates: start: 20160613, end: 20170129
  5. RYO ANTI-HAIR LOSS SHAMPOO [Suspect]
     Active Substance: DEXPANTHENOL\PYRITHIONE ZINC\SALICYLIC ACID
     Indication: PROPHYLAXIS
     Dosage: ?          QUANTITY:400 ML;?
     Route: 061
     Dates: start: 20151021, end: 20170210
  6. CLONAZEPAM. [Concomitant]
     Active Substance: CLONAZEPAM
  7. RYO ANTI-HAIR LOSS SHAMPOO [Suspect]
     Active Substance: DEXPANTHENOL\PYRITHIONE ZINC\SALICYLIC ACID
     Indication: ALOPECIA
     Dosage: ?          QUANTITY:400 ML;?
     Route: 061
     Dates: start: 20151021, end: 20170210

REACTIONS (11)
  - Immune system disorder [None]
  - Pain [None]
  - Influenza [None]
  - Chills [None]
  - Respiratory tract infection [None]
  - Productive cough [None]
  - Oropharyngeal pain [None]
  - Respiratory disorder [None]
  - Viral infection [None]
  - Oral disorder [None]
  - Chemical injury [None]

NARRATIVE: CASE EVENT DATE: 20170128
